FAERS Safety Report 21650258 (Version 4)
Quarter: 2022Q4

REPORT INFORMATION
  Report Type: Spontaneous
  Country: US (occurrence: US)
  Receive Date: 20221128
  Receipt Date: 20221207
  Transmission Date: 20230113
  Serious: Yes (Other)
  Sender: FDA-Public Use
  Company Number: US-SA-SAC20221125001190

PATIENT
  Age: 43 Year
  Sex: Female

DRUGS (1)
  1. DUPIXENT [Suspect]
     Active Substance: DUPILUMAB
     Dosage: 300 MG, FREQUENCY: OTHER
     Route: 058

REACTIONS (5)
  - Central sleep apnoea syndrome [Unknown]
  - Obstructive sleep apnoea syndrome [Unknown]
  - Infestation [Unknown]
  - Injection site pain [Unknown]
  - Dry eye [Unknown]
